FAERS Safety Report 8872062 (Version 1)
Quarter: 2012Q4

REPORT INFORMATION
  Report Type: 
  Country: US (occurrence: US)
  Receive Date: 20121029
  Receipt Date: 20121029
  Transmission Date: 20130627
  Serious: No
  Sender: FDA-Public Use
  Company Number: US-BAYER-2012-113091

PATIENT
  Age: 85 Year
  Sex: Male

DRUGS (1)
  1. ALEVE CAPLET/TABLET,MIDOL EXTENDED RELIEF CAPLET [Suspect]
     Indication: PAIN
     Dosage: 1 DF, UNK
     Route: 048

REACTIONS (1)
  - Pain [None]
